FAERS Safety Report 8461048 (Version 7)
Quarter: 2018Q1

REPORT INFORMATION
  Report Type: Spontaneous
  Country: SE (occurrence: SE)
  Receive Date: 20120315
  Receipt Date: 20180306
  Transmission Date: 20180509
  Serious: Yes (Death, Hospitalization)
  Sender: FDA-Public Use
  Company Number: SE-ROCHE-1046733

PATIENT
  Age: 61 Year
  Sex: Male

DRUGS (7)
  1. CYKLOFOSFAMID [Suspect]
     Active Substance: CYCLOPHOSPHAMIDE
     Indication: DIFFUSE LARGE B-CELL LYMPHOMA
     Route: 042
     Dates: start: 20120103, end: 20120130
  2. METHOTREXATE. [Concomitant]
     Active Substance: METHOTREXATE
     Indication: LYMPHOMA
     Route: 037
     Dates: start: 20120103, end: 20120103
  3. DOXORUBICIN [Suspect]
     Active Substance: DOXORUBICIN
     Indication: DIFFUSE LARGE B-CELL LYMPHOMA
     Route: 042
     Dates: start: 20120103, end: 20120130
  4. DELTISON [Suspect]
     Active Substance: PREDNISONE
     Indication: DIFFUSE LARGE B-CELL LYMPHOMA
     Route: 065
     Dates: start: 20120103, end: 20120130
  5. ONCOVIN [Suspect]
     Active Substance: VINCRISTINE SULFATE
     Indication: DIFFUSE LARGE B-CELL LYMPHOMA
     Route: 042
     Dates: start: 20120103, end: 20120312
  6. MABTHERA [Suspect]
     Active Substance: RITUXIMAB
     Indication: DIFFUSE LARGE B-CELL LYMPHOMA
     Route: 042
     Dates: start: 20120103, end: 20120103
  7. ZEFFIX [Concomitant]
     Active Substance: LAMIVUDINE
     Indication: HEPATITIS B
     Route: 048
     Dates: start: 20111227, end: 20120302

REACTIONS (3)
  - Intentional product use issue [Fatal]
  - Progressive multifocal leukoencephalopathy [Fatal]
  - Off label use [Fatal]

NARRATIVE: CASE EVENT DATE: 20120116
